FAERS Safety Report 21872158 (Version 1)
Quarter: 2023Q1

REPORT INFORMATION
  Report Type: Spontaneous
  Country: US (occurrence: None)
  Receive Date: 20230113
  Receipt Date: 20230113
  Transmission Date: 20230417
  Serious: Yes (Other)
  Sender: FDA-Public Use
  Company Number: None

PATIENT
  Sex: Female

DRUGS (1)
  1. SKYRIZI [Suspect]
     Active Substance: RISANKIZUMAB-RZAA
     Indication: Psoriasis
     Dosage: OTHER STRENGTH : 150MG/ML (1ML);?OTHER FREQUENCY : EVERY 12 WEEKS;?
     Route: 058
     Dates: start: 20220525

REACTIONS (1)
  - Surgery [None]
